FAERS Safety Report 16633885 (Version 2)
Quarter: 2020Q2

REPORT INFORMATION
  Report Type: Spontaneous
  Country: US (occurrence: US)
  Receive Date: 20190725
  Receipt Date: 20200423
  Transmission Date: 20200713
  Serious: Yes (Other)
  Sender: FDA-Public Use
  Company Number: US-DERMIRA, INC.-US-2019DER000225

PATIENT
  Age: 2 Month
  Sex: Male
  Weight: 6.58 kg

DRUGS (2)
  1. QBREXZA [Suspect]
     Active Substance: GLYCOPYRRONIUM TOSYLATE
     Indication: ACCIDENTAL EXPOSURE TO PRODUCT BY CHILD
     Dosage: ACCIDENTAL EXPOSURE
     Route: 061
  2. VITAMIN D                          /00107901/ [Concomitant]
     Active Substance: ERGOCALCIFEROL
     Indication: PRODUCT USED FOR UNKNOWN INDICATION
     Dosage: VIA DROPS

REACTIONS (3)
  - Accidental exposure to product by child [Recovered/Resolved]
  - Mydriasis [Recovered/Resolved]
  - Pupils unequal [Recovering/Resolving]

NARRATIVE: CASE EVENT DATE: 20190321
